FAERS Safety Report 14983181 (Version 1)
Quarter: 2018Q2

REPORT INFORMATION
  Report Type: Spontaneous
  Country: NL (occurrence: NL)
  Receive Date: 20180607
  Receipt Date: 20180607
  Transmission Date: 20180711
  Serious: Yes (Other)
  Sender: FDA-Public Use
  Company Number: NL-TEVA-2018-NL-903250

PATIENT
  Age: 70 Year
  Sex: Female
  Weight: 85 kg

DRUGS (6)
  1. SIMVASTATINE TABLET FO 10MG FILMOMHULDE TABLET, 10 MG (MILLIGRAM [Suspect]
     Active Substance: SIMVASTATIN
     Indication: HYPERCHOLESTEROLAEMIA
     Dosage: 10 MILLIGRAM DAILY; 1DD
     Dates: start: 20180216, end: 20180304
  2. ATORVASTATINE TABLET 10MG (ALS CA-ZOUT-3-WATER) TABLET, 10 MG (MILLIG [Suspect]
     Active Substance: ATORVASTATIN
     Indication: HYPERCHOLESTEROLAEMIA
     Dosage: 10 MILLIGRAM DAILY; 1DD
     Route: 065
     Dates: start: 20180305, end: 20180312
  3. OMEPRAZOL 40 MG [Concomitant]
     Active Substance: OMEPRAZOLE
     Dosage: 40 MILLIGRAM DAILY; 1DD1
  4. THYRAX: 0,025 [Concomitant]
  5. THYRAX: 0,1 [Concomitant]
     Route: 065
  6. PARACETAMOL [Concomitant]
     Active Substance: ACETAMINOPHEN
     Dosage: 1 DOSAGE FORMS DAILY; GEBRUIK WISSELEND
     Route: 065

REACTIONS (1)
  - Arrhythmia [Recovering/Resolving]

NARRATIVE: CASE EVENT DATE: 20180306
